FAERS Safety Report 17149758 (Version 2)
Quarter: 2020Q1

REPORT INFORMATION
  Report Type: Spontaneous
  Country: US (occurrence: US)
  Receive Date: 20191213
  Receipt Date: 20200124
  Transmission Date: 20200409
  Serious: No
  Sender: FDA-Public Use
  Company Number: US-AMGEN INC.-USASP2019205571

PATIENT
  Sex: Male

DRUGS (1)
  1. AIMOVIG [Suspect]
     Active Substance: ERENUMAB-AOOE
     Indication: MIGRAINE
     Dosage: 70 MILLIGRAM, QMO
     Route: 065
     Dates: start: 201811

REACTIONS (6)
  - Accidental exposure to product [Unknown]
  - Injection site haemorrhage [Unknown]
  - Wrong technique in product usage process [Unknown]
  - Injection site injury [Unknown]
  - Incorrect dose administered by device [Unknown]
  - Device failure [Unknown]

NARRATIVE: CASE EVENT DATE: 20191207
